FAERS Safety Report 9685369 (Version 2)
Quarter: 2014Q1

REPORT INFORMATION
  Report Type: Report from Study
  Country: US (occurrence: US)
  Receive Date: 20131113
  Receipt Date: 20140122
  Transmission Date: 20141002
  Serious: Yes (Death, Hospitalization)
  Sender: FDA-Public Use
  Company Number: PHEH2013US023537

PATIENT
  Age: 42 Year
  Sex: Female

DRUGS (1)
  1. AFINITOR [Suspect]
     Dosage: 10 MG, DAILY
     Route: 048
     Dates: start: 20130322

REACTIONS (2)
  - Death [Fatal]
  - Ileal perforation [Unknown]
